FAERS Safety Report 9919725 (Version 2)
Quarter: 2014Q1

REPORT INFORMATION
  Report Type: Spontaneous
  Country: FR (occurrence: FR)
  Receive Date: 20140224
  Receipt Date: 20140224
  Transmission Date: 20141002
  Serious: Yes (Other)
  Sender: FDA-Public Use
  Company Number: PHHY2014FR011623

PATIENT
  Age: 19 Year
  Sex: Female

DRUGS (1)
  1. GILENYA [Suspect]
     Indication: RELAPSING-REMITTING MULTIPLE SCLEROSIS
     Route: 048
     Dates: start: 20131127, end: 201401

REACTIONS (5)
  - Inflammation [Recovered/Resolved]
  - Upper respiratory tract infection [Unknown]
  - Laryngitis [Recovered/Resolved]
  - Rhinolaryngitis [Recovered/Resolved]
  - Lymphopenia [Unknown]
